FAERS Safety Report 20559152 (Version 1)
Quarter: 2022Q1

REPORT INFORMATION
  Report Type: Spontaneous
  Country: US (occurrence: None)
  Receive Date: 20220304
  Receipt Date: 20220304
  Transmission Date: 20220424
  Serious: No
  Sender: FDA-Public Use
  Company Number: None

PATIENT
  Age: 74 Year
  Sex: Female

DRUGS (3)
  1. TOPROL XL [Suspect]
     Active Substance: METOPROLOL SUCCINATE
     Dosage: 100 MG PO DAILY  ?
     Dates: start: 201112
  2. NORVASC [Suspect]
     Active Substance: AMLODIPINE BESYLATE
     Dates: start: 201102
  3. ACCUPRIL [Suspect]
     Active Substance: QUINAPRIL HYDROCHLORIDE
     Dosage: 40 MG PO DAILY

REACTIONS (3)
  - Product substitution issue [None]
  - Hypertensive urgency [None]
  - Hypertension [None]

NARRATIVE: CASE EVENT DATE: 20111208
